FAERS Safety Report 9445830 (Version 1)
Quarter: 2013Q3

REPORT INFORMATION
  Report Type: Report from Study
  Country: FR (occurrence: FR)
  Receive Date: 20130807
  Receipt Date: 20130807
  Transmission Date: 20140515
  Serious: Yes (Death)
  Sender: FDA-Public Use
  Company Number: FR-GENZYME-CAMP-1003057

PATIENT
  Age: 58 Year
  Sex: Female
  Weight: 57 kg

DRUGS (4)
  1. CAMPATH [Suspect]
     Indication: CHRONIC LYMPHOCYTIC LEUKAEMIA
     Dosage: 30 MG,QD, ON THE FIRST 3 CONSECUTIVE DAYS OF EVERY 28 DAY CYCLE
     Route: 058
     Dates: start: 20080515, end: 20080721
  2. CAMPATH [Suspect]
     Dosage: UNK, 7 INJECTIONS
     Route: 058
     Dates: start: 20090622, end: 20090806
  3. FLUDARA [Suspect]
     Indication: CHRONIC LYMPHOCYTIC LEUKAEMIA
     Dosage: 60 MG, QD, ON THE FIRST 3 CONSECUTIVE DAYS OF EVERY 28 DAY CYCLE
     Route: 048
     Dates: start: 20080515, end: 20080721
  4. CYCLOPHOSPHAMIDE [Suspect]
     Indication: CHRONIC LYMPHOCYTIC LEUKAEMIA
     Dosage: 400 MG, QD, ON THE FIRST 3 CONSECUTIVE DAYS OF EVERY 28 DAY CYCLE
     Route: 048
     Dates: start: 20080515, end: 20080721

REACTIONS (4)
  - Lung disorder [Fatal]
  - Acute respiratory distress syndrome [Fatal]
  - Infection [Fatal]
  - Disease progression [Fatal]
